FAERS Safety Report 8773650 (Version 2)
Quarter: 2012Q4

REPORT INFORMATION
  Report Type: 
  Country: US (occurrence: US)
  Receive Date: 20120907
  Receipt Date: 20121109
  Transmission Date: 20130627
  Serious: No
  Sender: FDA-Public Use
  Company Number: US-009507513-1208USA009983

PATIENT
  Age: 31 Year
  Sex: Female
  Weight: 49.89 kg

DRUGS (2)
  1. CLARITIN REDITABS [Suspect]
     Indication: HYPERSENSITIVITY
     Dosage: 10 mg, qd
     Route: 048
     Dates: start: 20120811, end: 20120816
  2. LEVOTHYROXINE SODIUM [Concomitant]
     Indication: THYROID DISORDER
     Dosage: UNK, Unknown

REACTIONS (1)
  - Drug ineffective [Unknown]
